FAERS Safety Report 5484668-7 (Version None)
Quarter: 2007Q4

REPORT INFORMATION
  Report Type: 
  Country: None (occurrence: None)
  Receive Date: 20071012
  Receipt Date: 20071004
  Transmission Date: 20080405
  Serious: Yes (Other)
  Sender: FDA-Public Use
  Company Number: BR-PFIZER INC-2006152959

PATIENT
  Sex: Female
  Weight: 95 kg

DRUGS (2)
  1. DEPO-PROVERA SUSPENSION/INJ [Suspect]
     Indication: CONTRACEPTION
     Route: 030
     Dates: start: 20020601, end: 20020601
  2. DEPO-PROVERA SUSPENSION/INJ [Suspect]
     Route: 030
     Dates: start: 20070301, end: 20070301

REACTIONS (7)
  - ACNE [None]
  - AMENORRHOEA [None]
  - BREAST ENLARGEMENT [None]
  - METRORRHAGIA [None]
  - OEDEMA PERIPHERAL [None]
  - OVARIAN CYST [None]
  - WEIGHT INCREASED [None]
